FAERS Safety Report 10760595 (Version 5)
Quarter: 2015Q4

REPORT INFORMATION
  Report Type: Report from Study
  Country: CA (occurrence: CA)
  Receive Date: 20150204
  Receipt Date: 20151021
  Transmission Date: 20160304
  Serious: Yes (Other)
  Sender: FDA-Public Use
  Company Number: CA-ROCHE-1467857

PATIENT
  Age: 67 Year
  Sex: Female

DRUGS (20)
  1. METHYLPREDNISOLONE. [Concomitant]
     Active Substance: METHYLPREDNISOLONE
     Route: 042
     Dates: start: 20140912
  2. SYNTHROID [Concomitant]
     Active Substance: LEVOTHYROXINE SODIUM
  3. CRESTOR [Concomitant]
     Active Substance: ROSUVASTATIN CALCIUM
  4. CARBOCAL D [Concomitant]
     Active Substance: CALCIUM\VITAMIN D
  5. PREDNISONE. [Concomitant]
     Active Substance: PREDNISONE
     Dosage: TO BE D/C ONCE RTX STARTS THEN WILL START IMURAN
     Route: 065
  6. K CITRATE [Concomitant]
  7. DEXILANT [Concomitant]
     Active Substance: DEXLANSOPRAZOLE
  8. IMURAN [Concomitant]
     Active Substance: AZATHIOPRINE
  9. DAPSONE. [Concomitant]
     Active Substance: DAPSONE
     Dosage: 3 MONTHS
     Route: 058
     Dates: end: 201311
  10. VITAMIN B12 [Concomitant]
     Active Substance: CYANOCOBALAMIN
  11. RITUXAN [Suspect]
     Active Substance: RITUXIMAB
     Indication: SJOGREN^S SYNDROME
     Dosage: LAST RITUXIMAB : 26/SEP/2014
     Route: 042
     Dates: start: 20140912
  12. RITUXAN [Suspect]
     Active Substance: RITUXIMAB
     Indication: VASCULITIS
  13. ACETAMINOPHEN. [Concomitant]
     Active Substance: ACETAMINOPHEN
     Route: 048
     Dates: start: 20140912
  14. ADVAIR HFA [Concomitant]
     Active Substance: FLUTICASONE PROPIONATE\SALMETEROL XINAFOATE
  15. ASA [Concomitant]
     Active Substance: ASPIRIN
  16. DIPHENHYDRAMINE HCL [Concomitant]
     Active Substance: DIPHENHYDRAMINE HYDROCHLORIDE
     Route: 048
     Dates: start: 20140912
  17. BISOPROLOL [Concomitant]
     Active Substance: BISOPROLOL
  18. SINGULAIR [Concomitant]
     Active Substance: MONTELUKAST SODIUM
  19. RISEDRONATE [Concomitant]
     Active Substance: RISEDRONATE SODIUM
  20. HYDROXYCHLOROQUINE [Concomitant]
     Active Substance: HYDROXYCHLOROQUINE

REACTIONS (3)
  - Off label use [Unknown]
  - Lung neoplasm malignant [Not Recovered/Not Resolved]
  - Oxygen saturation decreased [Unknown]

NARRATIVE: CASE EVENT DATE: 20140926
